FAERS Safety Report 7428490-0 (Version None)
Quarter: 2011Q2

REPORT INFORMATION
  Report Type: 
  Country: None (occurrence: None)
  Receive Date: 20110415
  Receipt Date: 20110415
  Transmission Date: 20111010
  Serious: Yes (Hospitalization)
  Sender: FDA-Public Use
  Company Number: None

PATIENT
  Sex: Female
  Weight: 48.8 kg

DRUGS (3)
  1. COUMADIN [Concomitant]
  2. METOPROLOL SUCCINATE [Concomitant]
  3. TAXOL [Suspect]
     Dosage: 435 MG
     Dates: end: 20110411

REACTIONS (4)
  - INTERNATIONAL NORMALISED RATIO DECREASED [None]
  - DEEP VEIN THROMBOSIS [None]
  - PULMONARY EMBOLISM [None]
  - OEDEMA PERIPHERAL [None]
